FAERS Safety Report 7526464-2 (Version None)
Quarter: 2011Q2

REPORT INFORMATION
  Report Type: 
  Country: None (occurrence: None)
  Receive Date: 20110606
  Receipt Date: 20110602
  Transmission Date: 20111010
  Serious: Yes (Death, Hospitalization)
  Sender: FDA-Public Use
  Company Number: CA-ASTRAZENECA-2011SE00377

PATIENT
  Age: 31765 Day
  Sex: Male

DRUGS (13)
  1. ZOLADEX [Suspect]
     Indication: PROSTATE CANCER
     Route: 058
  2. RISPERIDONE [Concomitant]
  3. BACLOFEN [Concomitant]
  4. HYDROCHLOROTHIAZIDE [Concomitant]
  5. SOFLAX [Concomitant]
  6. HYDERM [Concomitant]
  7. TRANDATE [Concomitant]
  8. ASPIRIN [Concomitant]
     Route: 048
  9. NITRO-DUR [Concomitant]
     Dosage: 0.6 MG PER HOUR
  10. NORVASC [Concomitant]
  11. TRAVATAN [Concomitant]
     Route: 047
  12. LIPITOR [Concomitant]
  13. DIOVAN [Concomitant]

REACTIONS (2)
  - HIP FRACTURE [None]
  - ACUTE MYOCARDIAL INFARCTION [None]
